FAERS Safety Report 23191591 (Version 1)
Quarter: 2023Q4

REPORT INFORMATION
  Report Type: Spontaneous
  Country: US (occurrence: None)
  Receive Date: 20231115
  Receipt Date: 20231115
  Transmission Date: 20240109
  Serious: Yes (Life-Threatening, Hospitalization)
  Sender: FDA-Public Use
  Company Number: None

PATIENT
  Sex: 0

DRUGS (1)
  1. HURRICAINE [Suspect]
     Active Substance: BENZOCAINE
     Indication: Preoperative care
     Dosage: 20 UNK - UNKNOWN ONCE ORAL?
     Route: 048
     Dates: start: 20231109, end: 20231109

REACTIONS (1)
  - Methaemoglobinaemia [None]

NARRATIVE: CASE EVENT DATE: 20231109
